FAERS Safety Report 25530233 (Version 1)
Quarter: 2025Q3

REPORT INFORMATION
  Report Type: Spontaneous
  Country: US (occurrence: US)
  Receive Date: 20250708
  Receipt Date: 20250708
  Transmission Date: 20251020
  Serious: No
  Sender: SANOFI AVENTIS
  Company Number: US-SA-2025SA184055

PATIENT
  Sex: Female

DRUGS (11)
  1. DUPIXENT [Suspect]
     Active Substance: DUPILUMAB
     Indication: Dermatitis atopic
     Dosage: 300 MG, QOW
     Route: 058
     Dates: start: 20240904
  2. BUDESONIDE [Concomitant]
     Active Substance: BUDESONIDE
  3. BUPROPION [Concomitant]
     Active Substance: BUPROPION
  4. EPINEPHRINE [Concomitant]
     Active Substance: EPINEPHRINE
  5. ETHINYL ESTRADIOL\NORETHINDRONE [Concomitant]
     Active Substance: ETHINYL ESTRADIOL\NORETHINDRONE
  6. OMEPRAZOLE [Concomitant]
     Active Substance: OMEPRAZOLE
  7. SERTRALINE [Concomitant]
     Active Substance: SERTRALINE HYDROCHLORIDE
  8. SUCRALFATE [Concomitant]
     Active Substance: SUCRALFATE
  9. TACROLIMUS [Concomitant]
     Active Substance: TACROLIMUS
  10. HYOSCYAMINE [Concomitant]
     Active Substance: HYOSCYAMINE
  11. ONDANSETRON [Concomitant]
     Active Substance: ONDANSETRON

REACTIONS (2)
  - Eczema [Unknown]
  - Depression [Unknown]
